FAERS Safety Report 14517280 (Version 2)
Quarter: 2018Q1

REPORT INFORMATION
  Report Type: Report from Study
  Country: None (occurrence: KR)
  Receive Date: 20180212
  Receipt Date: 20180305
  Transmission Date: 20180509
  Serious: Yes (Hospitalization)
  Sender: FDA-Public Use
  Company Number: KR-ABBVIE-18K-090-2229227-00

PATIENT
  Age: 20 Year
  Sex: Female
  Weight: 50 kg

DRUGS (2)
  1. HUMIRA [Suspect]
     Active Substance: ADALIMUMAB
     Indication: UVEITIS
     Route: 058
     Dates: start: 20171212, end: 20180130
  2. HUMIRA [Suspect]
     Active Substance: ADALIMUMAB
     Route: 058
     Dates: start: 20180222

REACTIONS (2)
  - Chest wall abscess [Unknown]
  - Chills [Recovering/Resolving]

NARRATIVE: CASE EVENT DATE: 20180103
